FAERS Safety Report 11563308 (Version 2)
Quarter: 2015Q4

REPORT INFORMATION
  Report Type: Spontaneous
  Country: PT (occurrence: PT)
  Receive Date: 20150928
  Receipt Date: 20151005
  Transmission Date: 20160304
  Serious: Yes (Death)
  Sender: FDA-Public Use
  Company Number: PT-JNJFOC-20150922772

PATIENT
  Age: 79 Year
  Sex: Male
  Weight: 47 kg

DRUGS (5)
  1. ASPIRIN. [Suspect]
     Active Substance: ASPIRIN
     Indication: CORONARY ARTERY DISEASE
     Route: 048
  2. FENTANYL. [Concomitant]
     Active Substance: FENTANYL
     Indication: CANCER PAIN
     Route: 062
  3. IPRATROPIUM BROMIDE/SALBUTAMOL [Concomitant]
     Indication: BRONCHOSPASM
     Route: 055
  4. IMBRUVICA [Suspect]
     Active Substance: IBRUTINIB
     Indication: CHRONIC LYMPHOCYTIC LEUKAEMIA
     Route: 048
     Dates: start: 20150818, end: 20150916
  5. OMEPRAZOLE. [Concomitant]
     Active Substance: OMEPRAZOLE
     Indication: GASTROINTESTINAL DISORDER THERAPY
     Dosage: PER OS

REACTIONS (4)
  - Neurological symptom [Unknown]
  - Subdural haemorrhage [Unknown]
  - Subdural haematoma [Fatal]
  - Contusion [Unknown]

NARRATIVE: CASE EVENT DATE: 201509
